FAERS Safety Report 13658495 (Version 4)
Quarter: 2017Q3

REPORT INFORMATION
  Report Type: Spontaneous
  Country: US (occurrence: US)
  Receive Date: 20170616
  Receipt Date: 20170914
  Transmission Date: 20171127
  Serious: Yes (Death, Hospitalization)
  Sender: FDA-Public Use
  Company Number: US-PFIZER INC-2017260432

PATIENT
  Age: 52 Year
  Sex: Female

DRUGS (1)
  1. SUTENT [Suspect]
     Active Substance: SUNITINIB MALATE
     Indication: METASTATIC RENAL CELL CARCINOMA
     Dosage: 50 MG, CYCLIC (1 CAPSULE BY MOUTH DAILY FOR 4 WEEKS STOP FOR 2 WEEKS AND REPEAT)
     Route: 048
     Dates: start: 20170607, end: 20170710

REACTIONS (7)
  - Nausea [Recovered/Resolved]
  - Eye swelling [Unknown]
  - Vomiting [Unknown]
  - Death [Fatal]
  - Neoplasm progression [Unknown]
  - Diarrhoea [Recovered/Resolved]
  - Candida infection [Unknown]

NARRATIVE: CASE EVENT DATE: 20170718
